FAERS Safety Report 24832524 (Version 1)
Quarter: 2025Q1

REPORT INFORMATION
  Report Type: Spontaneous
  Country: US (occurrence: US)
  Receive Date: 20250110
  Receipt Date: 20250110
  Transmission Date: 20250409
  Serious: No
  Sender: BOEHRINGER INGELHEIM
  Company Number: US-Komodo Health-a23aa00000593bhAAA

PATIENT
  Sex: Female

DRUGS (1)
  1. JARDIANCE [Suspect]
     Active Substance: EMPAGLIFLOZIN
     Indication: Cardiac disorder
     Dates: start: 2024, end: 2025

REACTIONS (2)
  - Nausea [Unknown]
  - Fungal infection [Unknown]

NARRATIVE: CASE EVENT DATE: 20250108
